FAERS Safety Report 4350493-3 (Version None)
Quarter: 2004Q2

REPORT INFORMATION
  Report Type: 
  Country: None (occurrence: None)
  Receive Date: 20040429
  Receipt Date: 20040429
  Transmission Date: 20050107
  Serious: Yes (Hospitalization)
  Sender: FDA-Public Use
  Company Number: None

PATIENT
  Sex: Female
  Weight: 64.4108 kg

DRUGS (6)
  1. ERBITUX 100 MG VIAL IMCLONE [Suspect]
     Indication: COLON CANCER METASTATIC
     Dosage: 660 MG ONE TIME D IV
     Route: 042
     Dates: start: 20040406, end: 20040406
  2. DEXAMETHASONE [Concomitant]
  3. TYLENOL (CAPLET) [Concomitant]
  4. DIPHENHYDRAMINE HCL [Concomitant]
  5. HYDROCORTISONE [Concomitant]
  6. FUROSEMIDE [Concomitant]

REACTIONS (2)
  - OXYGEN SATURATION DECREASED [None]
  - RESPIRATORY DISTRESS [None]
